FAERS Safety Report 15622419 (Version 1)
Quarter: 2018Q4

REPORT INFORMATION
  Report Type: Spontaneous
  Country: US (occurrence: US)
  Receive Date: 20181115
  Receipt Date: 20181115
  Transmission Date: 20190205
  Serious: No
  Sender: FDA-Public Use
  Company Number: US-ASTRAZENECA-2018SF37500

PATIENT
  Sex: Female
  Weight: 70.3 kg

DRUGS (3)
  1. VENTOLIN [Concomitant]
     Active Substance: ALBUTEROL SULFATE
     Indication: ASTHMA
     Dosage: AS REQUIRED
     Route: 055
  2. VITAMINS [Concomitant]
     Active Substance: VITAMINS
  3. SYMBICORT [Suspect]
     Active Substance: BUDESONIDE\FORMOTEROL FUMARATE DIHYDRATE
     Indication: ASTHMA
     Dosage: 2 PUFFS BID
     Route: 055
     Dates: start: 2018

REACTIONS (7)
  - Nocturnal dyspnoea [Unknown]
  - Malaise [Unknown]
  - Inflammation [Unknown]
  - Hypersensitivity [Unknown]
  - Intentional product misuse [Unknown]
  - Insomnia [Unknown]
  - Product dose omission [Unknown]

NARRATIVE: CASE EVENT DATE: 20181016
